FAERS Safety Report 10569797 (Version 1)
Quarter: 2014Q4

REPORT INFORMATION
  Report Type: Report from Study
  Country: GB (occurrence: GB)
  Receive Date: 20141107
  Receipt Date: 20141107
  Transmission Date: 20150529
  Serious: Yes (Disabling)
  Sender: FDA-Public Use
  Company Number: GB-ACCORD-026883

PATIENT
  Age: 64 Year
  Sex: Male

DRUGS (1)
  1. SIMVASTATIN. [Suspect]
     Active Substance: SIMVASTATIN
     Indication: BLOOD CHOLESTEROL INCREASED
     Route: 048

REACTIONS (12)
  - Flushing [Unknown]
  - Tenderness [Unknown]
  - Partner stress [Unknown]
  - Self esteem decreased [Unknown]
  - Myalgia [Unknown]
  - Asthenia [Unknown]
  - Rash [Unknown]
  - Feeling abnormal [Unknown]
  - Social problem [Unknown]
  - Impaired work ability [Unknown]
  - Quality of life decreased [Unknown]
  - Frustration [Unknown]
